FAERS Safety Report 5794330-9 (Version None)
Quarter: 2008Q2

REPORT INFORMATION
  Report Type: 
  Country: None (occurrence: None)
  Receive Date: 20080627
  Receipt Date: 20080620
  Transmission Date: 20081010
  Serious: Yes (Hospitalization, Other)
  Sender: FDA-Public Use
  Company Number: JP-ALLERGAN-0713767US

PATIENT
  Sex: Female

DRUGS (9)
  1. BOTULINUM TOXIN TYPE A - GENERAL [Suspect]
     Indication: TORTICOLLIS
     Dosage: 60 UNITS, SINGLE
     Route: 030
     Dates: start: 20071207, end: 20071207
  2. PRAMIPEXOLE DIHYDROCHLORIDE [Concomitant]
     Indication: MULTIPLE SYSTEM ATROPHY
     Dosage: 1.5 MG, QD
     Route: 048
     Dates: start: 20050224
  3. TIZANIDINE HYDROCHLORIDE [Concomitant]
     Indication: MULTIPLE SYSTEM ATROPHY
     Dosage: 3 MG, QD
     Route: 048
     Dates: start: 20060920
  4. BACLOFEN [Concomitant]
     Indication: MULTIPLE SYSTEM ATROPHY
     Dosage: 5 MG, QD
     Route: 048
     Dates: start: 20070606
  5. AMBROXOL HYDROCHLORIDE [Concomitant]
     Indication: MULTIPLE SYSTEM ATROPHY
     Dosage: 45 MG, QD
     Route: 048
     Dates: start: 20070606
  6. CARBOCISTEINE [Concomitant]
     Indication: MULTIPLE SYSTEM ATROPHY
     Dosage: 750 MG, QD
     Route: 048
     Dates: start: 20060614
  7. TEPRENONE [Concomitant]
     Indication: DRUG USE FOR UNKNOWN INDICATION
     Dosage: 1.5 G, QD
     Route: 048
     Dates: start: 20030417
  8. CHINESE MEDICINE [Concomitant]
     Indication: MULTIPLE SYSTEM ATROPHY
     Dosage: 7.5 G, QD
     Route: 048
     Dates: start: 20070829
  9. LEVODOPA BENSERAZIDE HYDROCHLO [Concomitant]
     Indication: MULTIPLE SYSTEM ATROPHY
     Dosage: 450 MG, QD
     Route: 048
     Dates: start: 20030417

REACTIONS (9)
  - CANDIDA SEPSIS [None]
  - DYSLALIA [None]
  - DYSPHAGIA [None]
  - HYPERCAPNIA [None]
  - OBSTRUCTIVE AIRWAYS DISORDER [None]
  - PNEUMONIA ASPIRATION [None]
  - PYREXIA [None]
  - RESPIRATORY DEPRESSION [None]
  - VOCAL CORD PARALYSIS [None]
